FAERS Safety Report 8215562-6 (Version None)
Quarter: 2012Q1

REPORT INFORMATION
  Report Type: 
  Country: None (occurrence: None)
  Receive Date: 20120316
  Receipt Date: 20120314
  Transmission Date: 20120608
  Serious: Yes (Other)
  Sender: FDA-Public Use
  Company Number: CA-ABBOTT-12P-028-0915161-00

PATIENT
  Sex: Female

DRUGS (2)
  1. HUMIRA [Suspect]
     Indication: CROHN'S DISEASE
  2. HUMIRA [Suspect]
     Indication: PSORIASIS
     Dates: start: 20100218

REACTIONS (3)
  - CYTOMEGALOVIRUS GASTROINTESTINAL INFECTION [None]
  - DRUG EFFECT DECREASED [None]
  - POLYP [None]
